FAERS Safety Report 20094030 (Version 4)
Quarter: 2021Q4

REPORT INFORMATION
  Report Type: Report from Study
  Country: TR (occurrence: TR)
  Receive Date: 20211121
  Receipt Date: 20211207
  Transmission Date: 20220303
  Serious: Yes (Hospitalization)
  Sender: FDA-Public Use
  Company Number: TR-ABBVIE-21K-161-4166248-00

PATIENT
  Age: 72 Year
  Sex: Female
  Weight: 71 kg

DRUGS (5)
  1. CARBIDOPA\LEVODOPA [Suspect]
     Active Substance: CARBIDOPA\LEVODOPA
     Indication: Parkinson^s disease
     Dosage: MORNING DOSE(ML): 7.00 CONTINUES DOSE(ML): 4.00 EXTRA DOSE(ML): 2.00
     Route: 050
     Dates: start: 20190919, end: 20211116
  2. CARBIDOPA\LEVODOPA [Suspect]
     Active Substance: CARBIDOPA\LEVODOPA
     Dosage: MORNING DOSE(ML): 5.00 CONTINUES DOSE(ML):3.00 EXTRA DOSE(ML):2.00
     Route: 050
     Dates: start: 20211118
  3. BENSERAZIDE HYDROCHLORIDE\LEVODOPA [Concomitant]
     Active Substance: BENSERAZIDE HYDROCHLORIDE\LEVODOPA
     Indication: Parkinson^s disease
     Route: 048
     Dates: start: 2012
  4. REQUIP XL [Concomitant]
     Active Substance: ROPINIROLE HYDROCHLORIDE
     Indication: Parkinson^s disease
     Route: 048
     Dates: start: 2012, end: 20211118
  5. STALEVO [Concomitant]
     Active Substance: CARBIDOPA\ENTACAPONE\LEVODOPA
     Indication: Parkinson^s disease
     Route: 048
     Dates: start: 2017, end: 20211118

REACTIONS (4)
  - Weight decreased [Recovering/Resolving]
  - Dyskinesia [Recovered/Resolved]
  - Stoma site discharge [Recovered/Resolved]
  - Stoma site infection [Recovering/Resolving]

NARRATIVE: CASE EVENT DATE: 20210601
